FAERS Safety Report 4958065-4 (Version None)
Quarter: 2006Q1

REPORT INFORMATION
  Report Type: 
  Country: None (occurrence: None)
  Receive Date: 20060324
  Receipt Date: 20060315
  Transmission Date: 20060701
  Serious: Yes (Hospitalization)
  Sender: FDA-Public Use
  Company Number: SUS1-2005-00944

PATIENT
  Age: 66 Year
  Sex: Male

DRUGS (4)
  1. PENTASA [Suspect]
     Indication: COLITIS ULCERATIVE
     Dosage: 750 MG, 3X/DAY: TID, ORAL
     Route: 048
     Dates: start: 20050915, end: 20051208
  2. PRAVASTATIN [Concomitant]
  3. SULFASALAZINE [Concomitant]
  4. PREDNISOLONE SODIUM PHOSPHATE [Concomitant]

REACTIONS (1)
  - INTERSTITIAL LUNG DISEASE [None]
